FAERS Safety Report 4681170-7 (Version None)
Quarter: 2005Q2

REPORT INFORMATION
  Report Type: 
  Country: None (occurrence: None)
  Receive Date: 20050603
  Receipt Date: 20050524
  Transmission Date: 20051028
  Serious: Yes (Other)
  Sender: FDA-Public Use
  Company Number: GB-BRISTOL-MYERS SQUIBB COMPANY-12980124

PATIENT
  Age: 34 Year
  Sex: Male

DRUGS (2)
  1. ABILIFY [Suspect]
     Indication: SCHIZOPHRENIA, PARANOID TYPE
     Route: 048
     Dates: start: 20050414, end: 20050504
  2. DIAZEPAM [Concomitant]
     Dosage: 1-2 THREE TIMES DAILY.
     Route: 065
     Dates: end: 20050501

REACTIONS (7)
  - AGGRESSION [None]
  - AGITATION [None]
  - BALANCE DISORDER [None]
  - NODDING OF HEAD [None]
  - PAIN IN EXTREMITY [None]
  - SALIVARY HYPERSECRETION [None]
  - VISION BLURRED [None]
